FAERS Safety Report 18079265 (Version 1)
Quarter: 2020Q3

REPORT INFORMATION
  Report Type: Spontaneous
  Country: US (occurrence: US)
  Receive Date: 20200728
  Receipt Date: 20200728
  Transmission Date: 20201103
  Serious: Yes (Other)
  Sender: FDA-Public Use
  Company Number: US-ALVOGEN-2020-ALVOGEN-113702

PATIENT
  Age: 55 Year
  Sex: Female

DRUGS (7)
  1. MEDROXYPROGESTERONE [Concomitant]
     Active Substance: MEDROXYPROGESTERONE
     Indication: PRODUCT USED FOR UNKNOWN INDICATION
  2. IBUPROFEN. [Concomitant]
     Active Substance: IBUPROFEN
     Indication: PRODUCT USED FOR UNKNOWN INDICATION
  3. SPIRONOLACTONE. [Concomitant]
     Active Substance: SPIRONOLACTONE
     Indication: PRODUCT USED FOR UNKNOWN INDICATION
  4. LISINOPRIL. [Concomitant]
     Active Substance: LISINOPRIL
     Indication: PRODUCT USED FOR UNKNOWN INDICATION
  5. ESTRADIOL. [Suspect]
     Active Substance: ESTRADIOL
     Indication: GENDER DYSPHORIA
  6. PROGESTERONE. [Suspect]
     Active Substance: PROGESTERONE
     Indication: GENDER DYSPHORIA
  7. ESTRADIOL. [Suspect]
     Active Substance: ESTRADIOL
     Indication: GENDER DYSPHORIA

REACTIONS (2)
  - Porphyria non-acute [Unknown]
  - Transaminases increased [Unknown]
